FAERS Safety Report 7266676-9 (Version None)
Quarter: 2011Q1

REPORT INFORMATION
  Report Type: 
  Country: None (occurrence: None)
  Receive Date: 20110201
  Receipt Date: 20110120
  Transmission Date: 20110831
  Serious: Yes (Hospitalization)
  Sender: FDA-Public Use
  Company Number: US-BIOGENIDEC-2010BI041539

PATIENT
  Age: 54 Year
  Sex: Male
  Weight: 83 kg

DRUGS (2)
  1. SPASTICITY MEDICATION (NOS) [Concomitant]
     Indication: MUSCLE SPASTICITY
  2. TYSABRI [Suspect]
     Indication: MULTIPLE SCLEROSIS
     Route: 042
     Dates: start: 20090629

REACTIONS (6)
  - URINARY TRACT INFECTION [None]
  - PROCEDURAL PAIN [None]
  - ASTHENIA [None]
  - CERVICAL SPINAL STENOSIS [None]
  - MULTIPLE SCLEROSIS RELAPSE [None]
  - FALL [None]
